FAERS Safety Report 7381944-8 (Version None)
Quarter: 2011Q1

REPORT INFORMATION
  Report Type: 
  Country: None (occurrence: None)
  Receive Date: 20110329
  Receipt Date: 20110323
  Transmission Date: 20110831
  Serious: Yes (Hospitalization)
  Sender: FDA-Public Use
  Company Number: US-B.I. PHARMACEUTICALS,INC./RIDGEFIELD-2011-BP-08955BP

PATIENT
  Sex: Male

DRUGS (8)
  1. ALLOPURINOL [Concomitant]
     Dosage: 100 MG
  2. COLCHICINE [Concomitant]
     Dosage: 1.8 MG
  3. AVAPRO [Concomitant]
     Dosage: 300 MG
  4. PROTONIX [Concomitant]
     Dosage: 40 MG
  5. PREDNISONE [Concomitant]
     Dosage: 20 MG
  6. NIFEDIPINE ER XL [Concomitant]
     Dosage: 90 MG
  7. PRADAXA [Suspect]
     Dosage: 300 MG
     Dates: start: 20110201
  8. ZOCOR [Concomitant]
     Dosage: 20 MG

REACTIONS (1)
  - CEREBROVASCULAR ACCIDENT [None]
